FAERS Safety Report 13687175 (Version 1)
Quarter: 2017Q2

REPORT INFORMATION
  Report Type: Spontaneous
  Country: GB (occurrence: GB)
  Receive Date: 20170623
  Receipt Date: 20170623
  Transmission Date: 20170830
  Serious: Yes (Disabling, Other)
  Sender: FDA-Public Use
  Company Number: GB-TEVA-778991ACC

PATIENT
  Age: 52 Year
  Sex: Male
  Weight: 136.52 kg

DRUGS (9)
  1. ZOLMITRIPTAN. [Concomitant]
     Active Substance: ZOLMITRIPTAN
  2. SALBUTAMOL BASE [Concomitant]
  3. INDOMETACIN [Concomitant]
     Active Substance: INDOMETHACIN
  4. PREGABALIN. [Concomitant]
     Active Substance: PREGABALIN
     Dosage: 300 MILLIGRAM DAILY;
  5. RAMIPRIL. [Concomitant]
     Active Substance: RAMIPRIL
  6. TRAMADOL. [Suspect]
     Active Substance: TRAMADOL
     Indication: NEURALGIA
     Dosage: 400 MILLIGRAM DAILY; ESCALATING TO 200MG SR BD
     Route: 048
     Dates: start: 20130712
  7. ORAMORPH [Concomitant]
     Active Substance: MORPHINE SULFATE
  8. CLENIL MODULITE [Concomitant]
     Active Substance: BECLOMETHASONE DIPROPIONATE
  9. TOSTRAN [Concomitant]
     Active Substance: TESTOSTERONE

REACTIONS (6)
  - Endocrine toxicity [Not Recovered/Not Resolved]
  - Cortisol decreased [Unknown]
  - Withdrawal syndrome [Unknown]
  - Androgen deficiency [Unknown]
  - Adrenocortical insufficiency acute [Unknown]
  - Malaise [Unknown]

NARRATIVE: CASE EVENT DATE: 201604
